FAERS Safety Report 17852145 (Version 1)
Quarter: 2020Q2

REPORT INFORMATION
  Report Type: Spontaneous
  Country: US (occurrence: US)
  Receive Date: 20200602
  Receipt Date: 20200602
  Transmission Date: 20200714
  Serious: Yes (Other)
  Sender: FDA-Public Use
  Company Number: US-NAPPMUNDI-USA-2020-0153832

PATIENT
  Sex: Male

DRUGS (1)
  1. OXYCODONE HYDROCHLORIDE (SIMILAR TO NDA 22-272) [Suspect]
     Active Substance: OXYCODONE HYDROCHLORIDE
     Indication: PAIN
     Dosage: UNK, QID
     Route: 048

REACTIONS (14)
  - Weight decreased [Unknown]
  - Renal cancer metastatic [Recovering/Resolving]
  - Cholecystectomy [Unknown]
  - Interstitial lung disease [Unknown]
  - Gangrene [Unknown]
  - Weight increased [Unknown]
  - Hypertension [Unknown]
  - Attention deficit hyperactivity disorder [Unknown]
  - Pain [Unknown]
  - Ulcer [Unknown]
  - Gastrooesophageal reflux disease [Unknown]
  - Feeling abnormal [Unknown]
  - Dizziness [Unknown]
  - Fatigue [Unknown]
